FAERS Safety Report 13131547 (Version 1)
Quarter: 2017Q1

REPORT INFORMATION
  Report Type: Spontaneous
  Country: DK (occurrence: DK)
  Receive Date: 20170119
  Receipt Date: 20170119
  Transmission Date: 20170428
  Serious: Yes (Other)
  Sender: FDA-Public Use
  Company Number: DK-TEVA-2016-10850

PATIENT
  Age: 22 Year
  Sex: Female

DRUGS (7)
  1. FLUOXETINE [Suspect]
     Active Substance: FLUOXETINE HYDROCHLORIDE
     Indication: PRODUCT USED FOR UNKNOWN INDICATION
     Dosage: 60 MG, UNK
     Route: 065
  2. GESTINYL [Concomitant]
  3. FLUOXETINE [Suspect]
     Active Substance: FLUOXETINE HYDROCHLORIDE
     Dosage: 40 MILLIGRAM DAILY;
     Route: 065
     Dates: end: 20160428
  4. FLUOXETINE [Suspect]
     Active Substance: FLUOXETINE HYDROCHLORIDE
     Route: 065
     Dates: start: 20160428, end: 20160519
  5. FLUOXETINE [Suspect]
     Active Substance: FLUOXETINE HYDROCHLORIDE
     Dosage: 20 MILLIGRAM DAILY; 20 MG, UNK
     Route: 065
     Dates: start: 20150722
  6. NOZINAN [Concomitant]
     Active Substance: LEVOMEPROMAZINE
     Route: 065
  7. SERENASE [Concomitant]
     Active Substance: HALOPERIDOL

REACTIONS (3)
  - Pituitary tumour benign [Unknown]
  - Hyperprolactinaemia [Recovered/Resolved]
  - Galactorrhoea [Unknown]

NARRATIVE: CASE EVENT DATE: 20160422
